FAERS Safety Report 7177708-0 (Version None)
Quarter: 2010Q4

REPORT INFORMATION
  Report Type: 
  Country: None (occurrence: None)
  Receive Date: 20101220
  Receipt Date: 20101214
  Transmission Date: 20110411
  Serious: Yes (Other)
  Sender: FDA-Public Use
  Company Number: CA-US-EMD SERONO, INC.-230078J09CAN

PATIENT
  Sex: Female

DRUGS (2)
  1. REBIF [Suspect]
     Indication: RELAPSING-REMITTING MULTIPLE SCLEROSIS
     Dates: start: 20010401
  2. CARBAMAZEPINE [Concomitant]

REACTIONS (7)
  - AMNESIA [None]
  - ASTIGMATISM [None]
  - EPILEPSY [None]
  - INCREASED APPETITE [None]
  - INJECTION SITE HAEMATOMA [None]
  - OPTIC NEURITIS [None]
  - WEIGHT INCREASED [None]
